FAERS Safety Report 5528169-6 (Version None)
Quarter: 2007Q4

REPORT INFORMATION
  Report Type: 
  Country: None (occurrence: None)
  Receive Date: 20071128
  Receipt Date: 20071119
  Transmission Date: 20080405
  Serious: Yes (Hospitalization)
  Sender: FDA-Public Use
  Company Number: HQWYE931809JUL07

PATIENT
  Sex: Female
  Weight: 94.2 kg

DRUGS (13)
  1. PLACEBO [Suspect]
     Indication: OSTEOARTHRITIS
     Dosage: PLA-695, NAPROXEN OR PLACEBO BID
     Route: 048
     Dates: start: 20070614, end: 20070705
  2. CALCIUM [Concomitant]
     Indication: MEDICAL DIET
     Route: 048
     Dates: start: 20050101
  3. MAGNESIUM SULFATE [Concomitant]
     Indication: MEDICAL DIET
     Route: 048
     Dates: start: 20050101
  4. ZINC [Concomitant]
     Route: 048
     Dates: start: 20050101
  5. HYDROCHLOROTHIAZIDE [Concomitant]
     Indication: HYPERTENSION
     Route: 048
     Dates: start: 20040101
  6. NAPROXEN [Suspect]
     Indication: OSTEOARTHRITIS
     Dosage: TWICE DAILY
     Route: 048
     Dates: start: 20070614, end: 20070705
  7. LEVOTHYROXINE SODIUM [Concomitant]
     Indication: HYPOTHYROIDISM
     Route: 048
     Dates: start: 19730101
  8. OMEGA 3 [Concomitant]
     Route: 048
     Dates: start: 20030101
  9. SPIRONOLACTONE [Concomitant]
     Indication: HYPERTENSION
     Route: 048
     Dates: start: 20010101
  10. VITAMIN B-12 [Concomitant]
  11. ZETIA [Concomitant]
     Indication: HYPERLIPIDAEMIA
     Route: 048
  12. ACTONEL [Concomitant]
     Indication: OSTEOPOROSIS
     Route: 048
  13. KLOR-CON [Concomitant]
     Route: 048
     Dates: start: 20010101

REACTIONS (1)
  - NON-CARDIAC CHEST PAIN [None]
